FAERS Safety Report 5868606-0 (Version None)
Quarter: 2008Q3

REPORT INFORMATION
  Report Type: 
  Country: None (occurrence: None)
  Receive Date: 20080903
  Receipt Date: 20080822
  Transmission Date: 20090109
  Serious: Yes (Congenital Anomaly, Other)
  Sender: FDA-Public Use
  Company Number: FR-NOVOPROD-278905

PATIENT
  Age: 5 Year
  Sex: Female

DRUGS (3)
  1. INSULATARD NOVOLET [Suspect]
     Indication: DIABETES MELLITUS
     Route: 064
     Dates: start: 19950101
  2. ACTRAPID [Suspect]
     Route: 064
     Dates: start: 19950101
  3. DEPAKENE [Concomitant]
     Route: 064

REACTIONS (8)
  - CLINODACTYLY [None]
  - DYSMORPHISM [None]
  - GROWTH RETARDATION [None]
  - HEART DISEASE CONGENITAL [None]
  - HYPOTONIA NEONATAL [None]
  - MENTAL RETARDATION [None]
  - PLAGIOCEPHALY [None]
  - SKULL MALFORMATION [None]
